FAERS Safety Report 12570578 (Version 3)
Quarter: 2016Q3

REPORT INFORMATION
  Report Type: Spontaneous
  Country: US (occurrence: US)
  Receive Date: 20160719
  Receipt Date: 20160801
  Transmission Date: 20161109
  Serious: Yes (Other)
  Sender: FDA-Public Use
  Company Number: US-TARO-2016TAR00610

PATIENT
  Age: 52 Year
  Sex: Female
  Weight: 82 kg

DRUGS (11)
  1. ALLEGRA [Concomitant]
     Active Substance: FEXOFENADINE HYDROCHLORIDE
     Dosage: 1 TABLETS, 1X/DAY
     Route: 048
     Dates: start: 20160613
  2. DIFLUCAN [Concomitant]
     Active Substance: FLUCONAZOLE
     Indication: VULVOVAGINAL MYCOTIC INFECTION
  3. ALLANTOIN. [Concomitant]
     Active Substance: ALLANTOIN
     Dosage: UNK, 2X/DAY
     Dates: start: 20160127
  4. CERAVE [Concomitant]
     Active Substance: TITANIUM DIOXIDE\ZINC OXIDE
     Dosage: UNK, 2X/DAY
     Dates: start: 20160127
  5. CETIRIZINE [Concomitant]
     Active Substance: CETIRIZINE HYDROCHLORIDE
     Dosage: 10 MG, 1X/DAY
     Route: 048
     Dates: start: 20160401
  6. ATROVENT [Concomitant]
     Active Substance: IPRATROPIUM BROMIDE
     Dosage: 2 DOSAGE UNITS IN EACH NOSTRIL PER DAY AS NEEDED
     Dates: start: 20160401
  7. DETROL [Concomitant]
     Active Substance: TOLTERODINE TARTRATE
     Dosage: 1 DOSAGE UNITS ONCE PER DAY AS NEEDED
  8. OYSCO 500/D [Concomitant]
     Dosage: 1 TABLETS, 2X/DAY
     Route: 048
     Dates: start: 20160401
  9. TERCONAZOLE VAGINAL CREAM 0.8% [Suspect]
     Active Substance: TERCONAZOLE
     Indication: VULVOVAGINAL MYCOTIC INFECTION
     Dosage: WITH APPLICATOR
     Route: 067
     Dates: start: 20160705
  10. ISOPTO TEARS [Concomitant]
     Active Substance: HYPROMELLOSE 2910 (4000 MPA.S)
     Dosage: 1 GTT, AS NEEDED, OU
     Route: 047
     Dates: start: 20160401
  11. FISH OIL (DHA AND EPA) [Concomitant]
     Route: 048

REACTIONS (7)
  - Vaginal discharge [Unknown]
  - Device allergy [Recovering/Resolving]
  - Pelvic pain [Unknown]
  - Vaginal infection [Unknown]
  - Vulvovaginal discomfort [Recovering/Resolving]
  - Vulvovaginal pain [Unknown]
  - Urinary tract infection [Recovering/Resolving]

NARRATIVE: CASE EVENT DATE: 201607
